FAERS Safety Report 17967889 (Version 2)
Quarter: 2020Q3

REPORT INFORMATION
  Report Type: Report from Study
  Country: US (occurrence: US)
  Receive Date: 20200701
  Receipt Date: 20200721
  Transmission Date: 20201103
  Serious: Yes (Death, Hospitalization, Other)
  Sender: FDA-Public Use
  Company Number: US-GILEAD-2020-0470024

PATIENT
  Age: 75 Year
  Sex: Male
  Weight: 87.6 kg

DRUGS (18)
  1. JANUVIA [Concomitant]
     Active Substance: SITAGLIPTIN PHOSPHATE
  2. SPIRONOLACTONE. [Concomitant]
     Active Substance: SPIRONOLACTONE
  3. TRAMADOL. [Concomitant]
     Active Substance: TRAMADOL
  4. METOPROLOL SUCCINATE. [Concomitant]
     Active Substance: METOPROLOL SUCCINATE
  5. AMBRISENTAN [Suspect]
     Active Substance: AMBRISENTAN
     Indication: PULMONARY ARTERIAL HYPERTENSION
     Dosage: 10 MG
     Route: 065
     Dates: start: 20200422, end: 20200606
  6. SILDENAFIL. [Concomitant]
     Active Substance: SILDENAFIL
  7. ELIQUIS [Concomitant]
     Active Substance: APIXABAN
  8. ADEMPAS [Concomitant]
     Active Substance: RIOCIGUAT
  9. TAMSULOSIN [Concomitant]
     Active Substance: TAMSULOSIN
  10. PANTOPRAZOLE [Concomitant]
     Active Substance: PANTOPRAZOLE
  11. ATORVASTATIN [Concomitant]
     Active Substance: ATORVASTATIN
  12. ASPIRIN (E.C.) [Concomitant]
     Active Substance: ASPIRIN
  13. AMBRISENTAN [Suspect]
     Active Substance: AMBRISENTAN
     Indication: PULMONARY HYPERTENSION
  14. AMIODARONE [Concomitant]
     Active Substance: AMIODARONE
  15. FUROSEMIDE. [Concomitant]
     Active Substance: FUROSEMIDE
  16. WARFARIN [Concomitant]
     Active Substance: WARFARIN
  17. SPIRIVA [Concomitant]
     Active Substance: TIOTROPIUM BROMIDE MONOHYDRATE
  18. PROAIR [FLUTICASONE PROPIONATE] [Concomitant]
     Active Substance: FLUTICASONE PROPIONATE

REACTIONS (2)
  - Acute respiratory failure [Fatal]
  - Pneumonia [Fatal]
